FAERS Safety Report 9819977 (Version 1)
Quarter: 2013Q4

REPORT INFORMATION
  Report Type: Spontaneous
  Country: US (occurrence: None)
  Receive Date: 20131223
  Receipt Date: 20131223
  Transmission Date: 20140711
  Serious: No
  Sender: FDA-Public Use
  Company Number: 222723

PATIENT
  Age: 61 Year
  Sex: Female

DRUGS (4)
  1. PICATO (0.015 %) [Suspect]
     Route: 062
     Dates: start: 20130715
  2. BYSTOLIC (NEBIVOLOL HYDROCHLORIDE) [Concomitant]
  3. HYDROCHLORATHYASIDE (HYDROCHLOROTHIAZIDE) [Concomitant]
  4. WELLBUTRIN XL (BUPROPION HYDROCHLORIDE)(TABLETS)(BUPROPION HYDROCHLORIDE) [Concomitant]

REACTIONS (7)
  - Application site discharge [None]
  - Eye irritation [None]
  - Application site pain [None]
  - Application site vesicles [None]
  - Application site erythema [None]
  - Application site swelling [None]
  - Incorrect product storage [None]
